FAERS Safety Report 12952586 (Version 2)
Quarter: 2019Q4

REPORT INFORMATION
  Report Type: Spontaneous
  Country: US (occurrence: US)
  Receive Date: 20161117
  Receipt Date: 20191226
  Transmission Date: 20200122
  Serious: Yes (Death, Other)
  Sender: FDA-Public Use
  Company Number: US-PFIZER INC-2016535356

PATIENT
  Age: 61 Year
  Sex: Male

DRUGS (1)
  1. VIAGRA [Suspect]
     Active Substance: SILDENAFIL CITRATE
     Indication: ERECTILE DYSFUNCTION
     Dosage: UNK; (1/2 TO 1 TABLET, 1 HOUR BEFORE NEEDED UP TO ONCE DAILY; FREQUENCY AVERAGED 2-3 TIMES PER WEEK)
     Route: 048
     Dates: start: 200706, end: 201310

REACTIONS (3)
  - Anxiety [Unknown]
  - Emotional distress [Unknown]
  - Malignant melanoma stage IV [Fatal]

NARRATIVE: CASE EVENT DATE: 20140125
